FAERS Safety Report 18158945 (Version 1)
Quarter: 2020Q3

REPORT INFORMATION
  Report Type: Spontaneous
  Country: US (occurrence: US)
  Receive Date: 20200817
  Receipt Date: 20200817
  Transmission Date: 20201103
  Serious: Yes (Other)
  Sender: FDA-Public Use
  Company Number: US-PFIZER INC-2020313400

PATIENT
  Age: 18 Year
  Sex: Female
  Weight: 58.06 kg

DRUGS (3)
  1. CORTEF [Suspect]
     Active Substance: HYDROCORTISONE
     Dosage: 5 MG, 4X/DAY
  2. CORTEF [Suspect]
     Active Substance: HYDROCORTISONE
     Dosage: 10 MG, 2X/DAY
  3. CORTEF [Suspect]
     Active Substance: HYDROCORTISONE
     Indication: ADRENAL INSUFFICIENCY
     Dosage: 20 MG, 1X/DAY (20MG; UP TO ONE A DAY)
     Dates: start: 2019

REACTIONS (2)
  - Intentional product misuse [Unknown]
  - Drug dependence [Unknown]
